FAERS Safety Report 7465803-8 (Version None)
Quarter: 2011Q2

REPORT INFORMATION
  Report Type: 
  Country: None (occurrence: None)
  Receive Date: 20110509
  Receipt Date: 20100405
  Transmission Date: 20111010
  Serious: No
  Sender: FDA-Public Use
  Company Number: US-ALEXION-A201000323

PATIENT
  Sex: Male

DRUGS (22)
  1. NIACIN [Concomitant]
     Dosage: 250 MG, UNK
     Route: 048
     Dates: start: 20090422
  2. ISORDIL [Concomitant]
     Dosage: 5 MG, UNK
     Route: 048
     Dates: start: 20090422
  3. SOLIRIS [Suspect]
     Dosage: 900 MG, Q2W
     Route: 042
     Dates: start: 20090708, end: 20100211
  4. OSCAL D                            /01746701/ [Concomitant]
     Dosage: 600 MG, UNK
     Route: 048
     Dates: start: 20090422
  5. DECADRON [Concomitant]
     Dosage: 4 MG, UNK
     Route: 048
     Dates: start: 20091014
  6. DIOVAN [Concomitant]
     Dosage: 80 MG, UNK
     Route: 048
     Dates: start: 20090422
  7. FOLIC ACID [Concomitant]
     Dosage: 1 MG, UNK
     Route: 048
     Dates: start: 20090422
  8. LOPID [Concomitant]
     Dosage: 600 MG, QAM AND QPM
     Route: 048
     Dates: start: 20090422
  9. VITAMIN B12                        /00056201/ [Concomitant]
     Dosage: 1000 UG, UNK
     Route: 030
     Dates: start: 20090422
  10. SOLIRIS [Suspect]
     Indication: PAROXYSMAL NOCTURNAL HAEMOGLOBINURIA
     Dosage: 600 MG, QWKX4
     Route: 042
     Dates: start: 20090610, end: 20090101
  11. TYLENOL (CAPLET) [Concomitant]
     Dosage: 650 MG, PRN
     Route: 048
     Dates: start: 20090422
  12. VALIUM [Concomitant]
     Dosage: 1 MG, UNK
     Route: 048
     Dates: start: 20090422
  13. DILANTIN [Concomitant]
     Dosage: 230 MG, UNK
     Route: 048
     Dates: start: 20090422
  14. PROTONIX [Concomitant]
     Dosage: 40 MG, UNK
     Route: 048
     Dates: start: 20090422
  15. FERATAB [Concomitant]
     Dosage: 325 MG, UNK
     Route: 048
     Dates: start: 20090422
  16. KEPPRA [Concomitant]
     Dosage: 1500 MG, UNK
     Route: 048
     Dates: start: 20090422
  17. AVANDIA [Concomitant]
     Dosage: 4 MG, UNK
     Route: 048
     Dates: start: 20090422
  18. ZOCOR [Concomitant]
     Dosage: 80 MG, UNK
     Route: 048
     Dates: start: 20090422
  19. VALIUM [Concomitant]
     Dosage: 5 MG, UNK
     Route: 048
     Dates: start: 20090422
  20. TENORMIN [Concomitant]
     Dosage: 100 MG, UNK
     Route: 048
     Dates: start: 20090422
  21. COLACE [Concomitant]
     Dosage: 100 MG, UNK
     Route: 048
     Dates: start: 20090422
  22. HYDROCHLOROTHIAZIDE [Concomitant]
     Dosage: 25 MG, UNK
     Route: 048
     Dates: start: 20090422

REACTIONS (3)
  - BURNING SENSATION [None]
  - PAIN IN EXTREMITY [None]
  - HAEMOGLOBIN DECREASED [None]
